FAERS Safety Report 12319813 (Version 1)
Quarter: 2016Q2

REPORT INFORMATION
  Report Type: Spontaneous
  Country: US (occurrence: US)
  Receive Date: 20160429
  Receipt Date: 20160429
  Transmission Date: 20160815
  Serious: No
  Sender: FDA-Public Use
  Company Number: US-ROCHE-1631906

PATIENT
  Sex: Male
  Weight: 90.8 kg

DRUGS (2)
  1. ESBRIET [Suspect]
     Active Substance: PIRFENIDONE
     Indication: IDIOPATHIC PULMONARY FIBROSIS
     Dosage: TOTAL: 2403 MG DAILY, 3 CAPSULES 3 TIMES DAILY
     Route: 048
     Dates: start: 20150206
  2. WARFARIN [Concomitant]
     Active Substance: WARFARIN

REACTIONS (4)
  - Malaise [Unknown]
  - Dyspepsia [Unknown]
  - Nausea [Unknown]
  - Feeding disorder [Unknown]
